FAERS Safety Report 4281266-8 (Version None)
Quarter: 2004Q1

REPORT INFORMATION
  Report Type: 
  Country: None (occurrence: None)
  Receive Date: 20040112
  Receipt Date: 20030221
  Transmission Date: 20041129
  Serious: Yes (Other)
  Sender: FDA-Public Use
  Company Number: NSADSS2003008628

PATIENT
  Age: 49 Year
  Sex: Male

DRUGS (4)
  1. REOPRO [Suspect]
     Indication: ILL-DEFINED DISORDER
     Dosage: 1 IN 1 AS NECESSARY, INTRAVENOUS BOLUS
     Route: 040
     Dates: start: 20030217, end: 20030217
  2. HEPARIN [Suspect]
     Indication: ILL-DEFINED DISORDER
     Dosage: INTRAVENOUS BOLUS
     Route: 040
     Dates: start: 20030217, end: 20030217
  3. COUMADIN [Suspect]
  4. PLAVIX [Concomitant]

REACTIONS (2)
  - COAGULATION TIME PROLONGED [None]
  - THROMBOCYTOPENIA [None]
